FAERS Safety Report 25203632 (Version 3)
Quarter: 2025Q2

REPORT INFORMATION
  Report Type: Spontaneous
  Country: US (occurrence: US)
  Receive Date: 20250416
  Receipt Date: 20250422
  Transmission Date: 20250716
  Serious: No
  Sender: SANOFI AVENTIS
  Company Number: US-SANOFI-02485548

PATIENT
  Age: 64 Year
  Sex: Female

DRUGS (1)
  1. TOUJEO [Suspect]
     Active Substance: INSULIN GLARGINE
     Indication: Type 2 diabetes mellitus
     Dosage: 35 IU, QD

REACTIONS (7)
  - Injection site bruising [Unknown]
  - Injection site swelling [Unknown]
  - Injection site pain [Unknown]
  - Multiple use of single-use product [Unknown]
  - Product storage error [Unknown]
  - Wrong technique in device usage process [Unknown]
  - Device mechanical issue [Unknown]
